FAERS Safety Report 9983762 (Version 1)
Quarter: 2014Q1

REPORT INFORMATION
  Report Type: Spontaneous
  Country: CA (occurrence: CA)
  Receive Date: 20140307
  Receipt Date: 20140307
  Transmission Date: 20141002
  Serious: Yes (Hospitalization)
  Sender: FDA-Public Use
  Company Number: CA-GLAXOSMITHKLINE-A1062578A

PATIENT
  Age: 79 Year
  Sex: Male
  Weight: 77.3 kg

DRUGS (4)
  1. ADVAIR [Suspect]
     Indication: ASTHMA
     Dosage: 1PUFF TWICE PER DAY
     Route: 055
     Dates: start: 201111, end: 201112
  2. VENTOLIN [Concomitant]
  3. ELOCON [Concomitant]
  4. DILTIAZEM [Concomitant]
     Dosage: 180MG PER DAY

REACTIONS (1)
  - Asthmatic crisis [Recovered/Resolved]
